FAERS Safety Report 6800851-X (Version None)
Quarter: 2010Q2

REPORT INFORMATION
  Report Type: 
  Country: None (occurrence: None)
  Receive Date: 20100629
  Receipt Date: 20100618
  Transmission Date: 20101027
  Serious: Yes (Congenital Anomaly, Other)
  Sender: FDA-Public Use
  Company Number: US-BRISTOL-MYERS SQUIBB COMPANY-15156771

PATIENT

DRUGS (2)
  1. EFAVIRENZ [Suspect]
  2. LAMIVUDINE [Suspect]

REACTIONS (1)
  - HYPOSPADIAS [None]
